FAERS Safety Report 17651773 (Version 1)
Quarter: 2020Q2

REPORT INFORMATION
  Report Type: Spontaneous
  Country: US (occurrence: US)
  Receive Date: 20200409
  Receipt Date: 20200409
  Transmission Date: 20200713
  Serious: Yes (Life-Threatening, Hospitalization, Other)
  Sender: FDA-Public Use
  Company Number: US-MYLANLABS-2020M1035485

PATIENT
  Age: 72 Year
  Sex: Male

DRUGS (2)
  1. AMIODARONE [Suspect]
     Active Substance: AMIODARONE
     Indication: VENTRICULAR TACHYCARDIA
     Dosage: UNK
     Route: 065
  2. LIDOCAINE. [Suspect]
     Active Substance: LIDOCAINE
     Indication: VENTRICULAR FIBRILLATION
     Dosage: UNK
     Route: 065

REACTIONS (3)
  - Ventricular fibrillation [Recovered/Resolved]
  - Condition aggravated [Recovered/Resolved]
  - Ventricular tachycardia [Recovered/Resolved]
